FAERS Safety Report 13298016 (Version 1)
Quarter: 2017Q1

REPORT INFORMATION
  Report Type: Report from Study
  Country: US (occurrence: US)
  Receive Date: 20170306
  Receipt Date: 20170306
  Transmission Date: 20170428
  Serious: Yes (Other)
  Sender: FDA-Public Use
  Company Number: US-ASTRAZENECA-2017SE10589

PATIENT
  Sex: Female

DRUGS (2)
  1. LISINOPRIL. [Suspect]
     Active Substance: LISINOPRIL
     Route: 048
  2. IRESSA [Suspect]
     Active Substance: GEFITINIB
     Indication: LUNG CARCINOMA CELL TYPE UNSPECIFIED STAGE 0
     Route: 048
     Dates: start: 20161229, end: 20170126

REACTIONS (8)
  - Vomiting [Unknown]
  - Tongue discomfort [Unknown]
  - Decreased appetite [Unknown]
  - Swollen tongue [Unknown]
  - Mastication disorder [Unknown]
  - Diarrhoea [Unknown]
  - Adverse drug reaction [Unknown]
  - Weight decreased [Unknown]
